FAERS Safety Report 7042925-7 (Version None)
Quarter: 2010Q4

REPORT INFORMATION
  Report Type: 
  Country: None (occurrence: None)
  Receive Date: 20101013
  Receipt Date: 20100525
  Transmission Date: 20110411
  Serious: No
  Sender: FDA-Public Use
  Company Number: US-ASTRAZENECA-2010SE24046

PATIENT
  Age: 65 Year
  Sex: Male

DRUGS (5)
  1. SYMBICORT [Suspect]
     Indication: EMPHYSEMA
     Dosage: 640 BID
     Route: 055
  2. NEXIUM [Suspect]
     Route: 048
  3. VALIUM [Concomitant]
  4. PREDNISONE [Concomitant]
  5. CADUET [Concomitant]

REACTIONS (4)
  - BACK PAIN [None]
  - BRONCHITIS [None]
  - ERYTHEMA [None]
  - INTENTIONAL DRUG MISUSE [None]
